FAERS Safety Report 14039303 (Version 1)
Quarter: 2017Q4

REPORT INFORMATION
  Report Type: Spontaneous
  Country: US (occurrence: US)
  Receive Date: 20171004
  Receipt Date: 20171004
  Transmission Date: 20180321
  Serious: No
  Sender: FDA-Public Use
  Company Number: US-INDIVIOR LIMITED-INDV-099368-2017

PATIENT
  Sex: Male

DRUGS (1)
  1. SUBOXONE [Suspect]
     Active Substance: BUPRENORPHINE HYDROCHLORIDE\NALOXONE HYDROCHLORIDE
     Indication: DRUG USE DISORDER
     Dosage: 8MG, ONE TIMES PER DAY
     Route: 065
     Dates: end: 20170217

REACTIONS (5)
  - Drug dependence [Unknown]
  - Arthralgia [Unknown]
  - Procedural pain [Unknown]
  - Arthritis [Unknown]
  - Intentional underdose [Recovered/Resolved]

NARRATIVE: CASE EVENT DATE: 201702
